FAERS Safety Report 7624039-8 (Version None)
Quarter: 2011Q3

REPORT INFORMATION
  Report Type: 
  Country: None (occurrence: None)
  Receive Date: 20110720
  Receipt Date: 20110714
  Transmission Date: 20111222
  Serious: Yes (Hospitalization, Other)
  Sender: FDA-Public Use
  Company Number: US-MERCK-1005USA00047

PATIENT
  Age: 65 Year
  Sex: Female
  Weight: 68 kg

DRUGS (12)
  1. FOSAMAX [Suspect]
     Route: 048
     Dates: start: 20010101
  2. FOSAMAX [Suspect]
     Indication: OSTEOPOROSIS
     Route: 048
     Dates: start: 20020601, end: 20051101
  3. FOSAMAX PLUS D [Suspect]
     Route: 048
     Dates: start: 20051101, end: 20060101
  4. FOSAMAX [Suspect]
     Route: 048
     Dates: start: 20060101, end: 20081002
  5. FOSAMAX [Suspect]
     Route: 048
     Dates: start: 20010101
  6. FOSAMAX [Suspect]
     Route: 048
     Dates: start: 20071019, end: 20080919
  7. ESTROGENS (UNSPECIFIED) [Concomitant]
     Indication: MENOPAUSE
     Route: 065
     Dates: start: 19930101, end: 20020101
  8. ALENDRONATE SODIUM [Suspect]
     Route: 065
     Dates: start: 20080101
  9. FOSAMAX [Suspect]
     Route: 048
     Dates: start: 20060101, end: 20081002
  10. LOTREL [Concomitant]
     Indication: HYPERTENSION
     Route: 065
     Dates: start: 19930101, end: 20020101
  11. FOSAMAX [Suspect]
     Indication: OSTEOPENIA
     Route: 048
     Dates: start: 20020601, end: 20051101
  12. FOSAMAX [Suspect]
     Route: 048
     Dates: start: 20071019, end: 20080919

REACTIONS (64)
  - OSTEONECROSIS OF JAW [None]
  - CONSTIPATION [None]
  - BRONCHITIS [None]
  - OEDEMA [None]
  - RASH [None]
  - GINGIVAL ULCERATION [None]
  - BLADDER DISORDER [None]
  - NAUSEA [None]
  - INFLAMMATION [None]
  - BACK PAIN [None]
  - STAPHYLOCOCCAL INFECTION [None]
  - LUNG NEOPLASM [None]
  - WHITE BLOOD CELL COUNT INCREASED [None]
  - TOOTHACHE [None]
  - RHINITIS ALLERGIC [None]
  - EPISTAXIS [None]
  - CHEST WALL MASS [None]
  - ASTHMA [None]
  - ABSCESS [None]
  - ATELECTASIS [None]
  - ORAL DISORDER [None]
  - OROPHARYNGEAL PAIN [None]
  - SOFT TISSUE INFECTION [None]
  - SINUS HEADACHE [None]
  - SEPSIS [None]
  - DYSPNOEA [None]
  - ANAEMIA [None]
  - DECREASED APPETITE [None]
  - CHRONIC OBSTRUCTIVE PULMONARY DISEASE [None]
  - OVERDOSE [None]
  - GASTROOESOPHAGEAL REFLUX DISEASE [None]
  - UPPER RESPIRATORY TRACT INFECTION [None]
  - EMPHYSEMA [None]
  - DIASTOLIC DYSFUNCTION [None]
  - CELLULITIS [None]
  - HYPERSOMNIA [None]
  - ARTHRITIS [None]
  - PNEUMONIA [None]
  - PULMONARY MASS [None]
  - ORAL FUNGAL INFECTION [None]
  - DIZZINESS [None]
  - IMPAIRED HEALING [None]
  - HYPERTENSION [None]
  - PRESYNCOPE [None]
  - WHEEZING [None]
  - DYSLIPIDAEMIA [None]
  - COUGH [None]
  - BLOOD PRESSURE DECREASED [None]
  - RENAL FAILURE ACUTE [None]
  - HYPERLIPIDAEMIA [None]
  - EXCORIATION [None]
  - SKIN LESION [None]
  - SCOLIOSIS [None]
  - ANAL ABSCESS [None]
  - HYPERCALCAEMIA [None]
  - ASTHENIA [None]
  - PROTEIN TOTAL ABNORMAL [None]
  - EXOSTOSIS [None]
  - ORAL TORUS [None]
  - MALAISE [None]
  - LEFT VENTRICULAR HYPERTROPHY [None]
  - FATIGUE [None]
  - TONGUE ULCERATION [None]
  - TOOTH DISCOLOURATION [None]
